FAERS Safety Report 4734597-9 (Version None)
Quarter: 2005Q3

REPORT INFORMATION
  Report Type: 
  Country: None (occurrence: None)
  Receive Date: 20050729
  Receipt Date: 20050719
  Transmission Date: 20060218
  Serious: Yes (Other)
  Sender: FDA-Public Use
  Company Number: 2005104162

PATIENT
  Sex: Female

DRUGS (2)
  1. ZOLOFT [Suspect]
     Indication: MAJOR DEPRESSION
     Dosage: 150 MG (1 IN 1 D), ORAL
     Route: 048
  2. ESTROGENS (ESTROGENS) [Concomitant]

REACTIONS (2)
  - DEPRESSION [None]
  - GASTRIC BYPASS [None]
